FAERS Safety Report 8529900-8 (Version None)
Quarter: 2012Q3

REPORT INFORMATION
  Report Type: 
  Country: None (occurrence: None)
  Receive Date: 20120723
  Receipt Date: 20120719
  Transmission Date: 20120928
  Serious: Yes (Death, Hospitalization)
  Sender: FDA-Public Use
  Company Number: BR-B.I. PHARMACEUTICALS,INC./RIDGEFIELD-2012-BR-00772BR

PATIENT
  Sex: Male

DRUGS (8)
  1. METFORMIN HCL [Concomitant]
     Indication: DIABETES MELLITUS
  2. TRAYENTA [Suspect]
     Indication: DIABETES MELLITUS
     Dosage: 5 MG
     Route: 048
     Dates: start: 20120626
  3. BENERVA [Concomitant]
  4. ACETYLSALICYLIC ACID SRT [Concomitant]
  5. SIPAX [Concomitant]
     Indication: DEPRESSION
  6. MEDICATION NOT FURTHER SPECIFIED [Concomitant]
     Indication: PROSTATIC DISORDER
  7. ASMAX [Concomitant]
  8. AMIODARONE HYDROCHLORIDE [Concomitant]
     Indication: CARDIAC DISORDER

REACTIONS (4)
  - RESPIRATORY FAILURE [None]
  - PNEUMONIA [None]
  - LUNG DISORDER [None]
  - DYSPNOEA [None]
